FAERS Safety Report 4343650-3 (Version None)
Quarter: 2004Q2

REPORT INFORMATION
  Report Type: 
  Country: None (occurrence: None)
  Receive Date: 20040419
  Receipt Date: 20040402
  Transmission Date: 20050107
  Serious: Yes (Life-Threatening)
  Sender: FDA-Public Use
  Company Number: DSA_23727_2003

PATIENT
  Age: 9 Year
  Sex: Female
  Weight: 30.0009 kg

DRUGS (12)
  1. ENALAPRIL MALEATE [Suspect]
     Indication: VASODILATION PROCEDURE
     Dosage: 0.5 MG BID PO
     Route: 048
     Dates: start: 20031129, end: 20031201
  2. ENALAPRIL MALEATE [Suspect]
     Dosage: 0.25 MG Q DAY PO
     Route: 048
     Dates: start: 20040215
  3. DOPAMINE HYDROCHLORIDE [Concomitant]
  4. DOBUTAMINE HCL [Concomitant]
  5. MILRINONE [Concomitant]
  6. FUROSEMIDE [Concomitant]
  7. CARPERITIDE [Concomitant]
  8. MIDAZOLAM HCL [Concomitant]
  9. MORPHINE HYROCHLORIDE [Concomitant]
  10. SPIRONOLACTONE [Concomitant]
  11. DIGOXIN [Concomitant]
  12. ARTFICIAL VENTILATION [Concomitant]

REACTIONS (13)
  - ALANINE AMINOTRANSFERASE INCREASED [None]
  - ASPARTATE AMINOTRANSFERASE INCREASED [None]
  - BLOOD CHLORIDE DECREASED [None]
  - BLOOD LACTATE DEHYDROGENASE INCREASED [None]
  - BLOOD PRESSURE DECREASED [None]
  - BLOOD SODIUM DECREASED [None]
  - HAEMATOCRIT DECREASED [None]
  - HAEMOGLOBIN DECREASED [None]
  - HYPERKALAEMIA [None]
  - PLATELET COUNT DECREASED [None]
  - PROTEIN TOTAL DECREASED [None]
  - RED BLOOD CELL COUNT DECREASED [None]
  - RENAL FAILURE ACUTE [None]
